FAERS Safety Report 9197564 (Version 1)
Quarter: 2013Q1

REPORT INFORMATION
  Report Type: Spontaneous
  Country: US (occurrence: None)
  Receive Date: 20120709
  Receipt Date: 20120709
  Transmission Date: 20140127
  Serious: Yes (Other)
  Sender: FDA-Public Use
  Company Number: PHEH2011US05980

PATIENT
  Sex: Female

DRUGS (3)
  1. GLEEVEC (IMATINIB) UNKNOWN [Suspect]
     Dosage: UNK
  2. SPRYCEL (DASATINIB) [Suspect]
  3. ANTIDEPRESSANTS (NO INGREDIENTS/SUBSTANCES) [Concomitant]

REACTIONS (2)
  - Pleural effusion [None]
  - Treatment failure [None]
